FAERS Safety Report 6076167-9 (Version None)
Quarter: 2009Q1

REPORT INFORMATION
  Report Type: 
  Country: None (occurrence: None)
  Receive Date: 20090212
  Receipt Date: 20090203
  Transmission Date: 20090719
  Serious: Yes (Hospitalization, Disabling)
  Sender: FDA-Public Use
  Company Number: JP-B.I. PHARMACEUTICALS,INC./RIDGEFIELD-2009-BP-01381NB

PATIENT
  Age: 74 Year
  Sex: Male

DRUGS (5)
  1. BI-SIFROL TABLETS [Suspect]
     Indication: PARKINSON'S DISEASE
     Dosage: .125MG
     Route: 048
     Dates: start: 20081203, end: 20090120
  2. TRANTOWA [Concomitant]
     Dosage: 1MG
     Route: 048
  3. LIMARMONE [Concomitant]
     Dosage: 15MCG
     Route: 048
  4. PRODEC [Concomitant]
     Dosage: 2MG
     Route: 048
  5. MICARDIS [Concomitant]
     Dosage: 40MG
     Route: 048

REACTIONS (2)
  - AZOTAEMIA [None]
  - RENAL IMPAIRMENT [None]
